FAERS Safety Report 9721415 (Version 2)
Quarter: 2014Q1

REPORT INFORMATION
  Report Type: Report from Study
  Country: JP (occurrence: JP)
  Receive Date: 20131129
  Receipt Date: 20140214
  Transmission Date: 20141002
  Serious: Yes (Hospitalization)
  Sender: FDA-Public Use
  Company Number: JP-ABBVIE-13P-087-1174430-00

PATIENT
  Age: 77 Year
  Sex: Female

DRUGS (2)
  1. LIPACREON [Suspect]
     Indication: PANCREATIC INSUFFICIENCY
     Route: 048
     Dates: start: 20121127, end: 20130617
  2. LIPACREON [Suspect]
     Route: 048
     Dates: start: 20130628

REACTIONS (1)
  - Hepatic cancer metastatic [Recovering/Resolving]
